FAERS Safety Report 19007711 (Version 1)
Quarter: 2021Q1

REPORT INFORMATION
  Report Type: Spontaneous
  Country: GB (occurrence: GB)
  Receive Date: 20210315
  Receipt Date: 20210315
  Transmission Date: 20210420
  Serious: Yes (Life-Threatening, Hospitalization)
  Sender: FDA-Public Use
  Company Number: GB-TEVA-2021-GB-1890662

PATIENT
  Age: 89 Year
  Sex: Male

DRUGS (1)
  1. DOXAZOSIN [Suspect]
     Active Substance: DOXAZOSIN MESYLATE
     Indication: HYPERTENSION
     Dosage: FORMULATION: MODIFIED?RELEASE
     Route: 065

REACTIONS (2)
  - Bezold-Jarisch reflex [Recovered/Resolved]
  - Contraindicated product administered [Recovered/Resolved]
